FAERS Safety Report 8036123-8 (Version None)
Quarter: 2012Q1

REPORT INFORMATION
  Report Type: 
  Country: None (occurrence: None)
  Receive Date: 20120111
  Receipt Date: 20120109
  Transmission Date: 20120608
  Serious: No
  Sender: FDA-Public Use
  Company Number: US-B.I. PHARMACEUTICALS,INC./RIDGEFIELD-2012-BP-00447BP

PATIENT
  Sex: Female

DRUGS (9)
  1. DIGIOXIN [Concomitant]
     Indication: HEART RATE
     Dosage: 0.25 MCG
     Route: 048
     Dates: start: 20111212
  2. ACTOS [Concomitant]
     Indication: TYPE 2 DIABETES MELLITUS
     Dosage: 30 MG
     Route: 048
     Dates: start: 19920101
  3. MEPROBAMATE [Concomitant]
     Indication: INSOMNIA
     Dosage: 800 MG
     Route: 048
     Dates: start: 19920101
  4. METOPROLOL TARTRATE [Concomitant]
     Indication: HEART RATE
     Dosage: 200 MG
     Route: 048
     Dates: start: 20111212
  5. HUMULIN N [Concomitant]
     Indication: TYPE 2 DIABETES MELLITUS
     Route: 058
     Dates: start: 19920101
  6. LIPITOR [Concomitant]
     Indication: HYPERCHOLESTEROLAEMIA
     Dosage: 10 MG
     Route: 048
     Dates: start: 19920101
  7. LEVOXYL [Concomitant]
     Indication: HYPOTHYROIDISM
     Dosage: 0.15 MG
     Route: 048
     Dates: start: 19920101
  8. PRADAXA [Suspect]
     Indication: ATRIAL FIBRILLATION
     Dosage: 300 MG
     Route: 048
     Dates: start: 20111214
  9. LOSARTAN POTASSIUM [Concomitant]
     Indication: BLOOD PRESSURE
     Dosage: 50 MG
     Route: 048
     Dates: start: 19920101

REACTIONS (1)
  - DYSGEUSIA [None]
